FAERS Safety Report 6615365-X (Version None)
Quarter: 2010Q1

REPORT INFORMATION
  Report Type: 
  Country: None (occurrence: None)
  Receive Date: 20100305
  Receipt Date: 20090917
  Transmission Date: 20100710
  Serious: No
  Sender: FDA-Public Use
  Company Number: A0805992A

PATIENT
  Sex: Female

DRUGS (3)
  1. REQUIP [Suspect]
     Indication: RESTLESS LEGS SYNDROME
     Dosage: 1MG PER DAY
     Route: 048
  2. SYNTHROID [Concomitant]
  3. THYROID TAB [Concomitant]

REACTIONS (4)
  - DISORIENTATION [None]
  - HANGOVER [None]
  - OVERDOSE [None]
  - SOMNOLENCE [None]
